FAERS Safety Report 7979114-5 (Version None)
Quarter: 2011Q4

REPORT INFORMATION
  Report Type: 
  Country: None (occurrence: None)
  Receive Date: 20111214
  Receipt Date: 20111205
  Transmission Date: 20120403
  Serious: Yes (Hospitalization, Other)
  Sender: FDA-Public Use
  Company Number: US-BAYER-2011-043988

PATIENT
  Age: 22 Year
  Sex: Female
  Weight: 51.701 kg

DRUGS (1)
  1. YAZ [Suspect]
     Indication: ORAL CONTRACEPTION
     Dosage: UNK
     Dates: start: 20060801, end: 20100201

REACTIONS (10)
  - ABDOMINAL PAIN UPPER [None]
  - PSYCHOLOGICAL TRAUMA [None]
  - INJURY [None]
  - ANXIETY [None]
  - CHOLECYSTITIS CHRONIC [None]
  - GALLBLADDER DISORDER [None]
  - FEAR [None]
  - PAIN [None]
  - NAUSEA [None]
  - EMOTIONAL DISTRESS [None]
